FAERS Safety Report 4304467-9 (Version None)
Quarter: 2004Q1

REPORT INFORMATION
  Report Type: 
  Country: None (occurrence: None)
  Receive Date: 20040225
  Receipt Date: 20040225
  Transmission Date: 20041129
  Serious: Yes (Hospitalization)
  Sender: FDA-Public Use
  Company Number: None

PATIENT
  Age: 65 Year
  Sex: Female
  Weight: 79 kg

DRUGS (2)
  1. IRINOTECAN (PHARMACIA) [Suspect]
     Indication: BREAST CANCER METASTATIC
     Dosage: 85-100/M2 IV DAYS 1,8
     Route: 042
     Dates: start: 20030821, end: 20031120
  2. CAPECITABINE (ROCHE) [Suspect]
     Indication: BREAST CANCER METASTATIC
     Dosage: 1500-1800/M2/D PO D1-14
     Route: 048
     Dates: start: 20030821, end: 20031120

REACTIONS (6)
  - CHRONIC OBSTRUCTIVE AIRWAYS DISEASE [None]
  - COMPUTERISED TOMOGRAM ABNORMAL [None]
  - DIARRHOEA [None]
  - DRUG TOXICITY [None]
  - DYSPNOEA [None]
  - TREATMENT NONCOMPLIANCE [None]
